FAERS Safety Report 8966668 (Version 1)
Quarter: 2012Q4

REPORT INFORMATION
  Report Type: Report from Study
  Country: DE (occurrence: DE)
  Receive Date: 20121214
  Receipt Date: 20121214
  Transmission Date: 20130627
  Serious: Yes (Hospitalization)
  Sender: FDA-Public Use
  Company Number: DE-BAXTER-2012BAX026898

PATIENT
  Age: 68 Year
  Sex: Female
  Weight: 102 kg

DRUGS (8)
  1. ENDOXAN 1G [Suspect]
     Indication: NODULAR (FOLLICULAR) LYMPHOMA
     Route: 042
     Dates: start: 20100825, end: 20101226
  2. ENDOXAN 1G [Suspect]
     Route: 042
     Dates: start: 20110118
  3. RITUXIMAB [Suspect]
     Indication: NODULAR (FOLLICULAR) LYMPHOMA
     Route: 042
     Dates: start: 20100824, end: 20101225
  4. RITUXIMAB [Suspect]
     Route: 042
     Dates: start: 20110117
  5. DOXORUBICINE [Suspect]
     Indication: NODULAR (FOLLICULAR) LYMPHOMA
     Route: 042
     Dates: start: 20100825, end: 20101226
  6. DOXORUBICINE [Suspect]
     Route: 042
     Dates: start: 20110118
  7. PREDNISONE [Suspect]
     Indication: NODULAR (FOLLICULAR) LYMPHOMA
     Route: 048
     Dates: start: 20100825, end: 20101226
  8. PREDNISONE [Suspect]
     Route: 048
     Dates: start: 20110118

REACTIONS (1)
  - Device related infection [Recovered/Resolved]
